FAERS Safety Report 23639652 (Version 2)
Quarter: 2024Q2

REPORT INFORMATION
  Report Type: Spontaneous
  Country: US (occurrence: US)
  Receive Date: 20240316
  Receipt Date: 20240405
  Transmission Date: 20240716
  Serious: Yes (Life-Threatening, Hospitalization, Other)
  Sender: FDA-Public Use
  Company Number: US-UNITED THERAPEUTICS-UNT-2024-007730

PATIENT
  Age: 89 Year
  Sex: Female

DRUGS (2)
  1. REMODULIN [Suspect]
     Active Substance: TREPROSTINIL
     Indication: Product used for unknown indication
     Dosage: 0.008 ?G/KG, CONTINUING (RATE 0.008 ML/HR)
     Route: 058
  2. REMODULIN [Suspect]
     Active Substance: TREPROSTINIL
     Dosage: UNK, CONTINUING
     Route: 058
     Dates: end: 202312

REACTIONS (7)
  - Accidental overdose [Recovered/Resolved]
  - Device use error [Unknown]
  - Hypotension [Recovered/Resolved]
  - Metabolic encephalopathy [Unknown]
  - Hypokalaemia [Unknown]
  - Hypothermia [Unknown]
  - Blood thyroid stimulating hormone decreased [Unknown]

NARRATIVE: CASE EVENT DATE: 20231201
